FAERS Safety Report 10763671 (Version 1)
Quarter: 2015Q1

REPORT INFORMATION
  Report Type: Spontaneous
  Country: US (occurrence: US)
  Receive Date: 20150204
  Receipt Date: 20150204
  Transmission Date: 20150721
  Serious: No
  Sender: FDA-Public Use
  Company Number: US-GLAXOSMITHKLINE-A1076471A

PATIENT
  Sex: Female

DRUGS (7)
  1. FLOLAN [Suspect]
     Active Substance: EPOPROSTENOL SODIUM
     Dosage: UNK
     Dates: start: 20140602
  2. FLOLAN [Suspect]
     Active Substance: EPOPROSTENOL SODIUM
     Dosage: 29 NG/KG/MIN CONTINUOUS; CONCENTRATION: 30,000 NG/ML; PUMP RATE: 70 ML/DAY; VIAL STRENGTH: 1.5 MG
     Route: 042
     Dates: start: 20140602, end: 20150126
  3. VELETRI [Concomitant]
     Active Substance: EPOPROSTENOL
  4. FLOLAN [Suspect]
     Active Substance: EPOPROSTENOL SODIUM
     Indication: PULMONARY ARTERIAL HYPERTENSION
     Dosage: 7 NG/KG/MIN, CONC: 10,000 NG/ML AT 50 ML/DAY, 0.5 MG VIAL STRENGTH, VIAL STRENGTH INCREASED TO [...]
     Route: 042
     Dates: start: 20140602
  5. FLOLAN [Suspect]
     Active Substance: EPOPROSTENOL SODIUM
     Dosage: UNK
     Dates: start: 20140602
  6. ASPIRIN. [Concomitant]
     Active Substance: ASPIRIN
  7. FLOLAN [Suspect]
     Active Substance: EPOPROSTENOL SODIUM
     Dosage: UNK
     Dates: start: 20140602

REACTIONS (9)
  - Pain in jaw [Not Recovered/Not Resolved]
  - Hypoaesthesia [Unknown]
  - Diarrhoea [Unknown]
  - Headache [Unknown]
  - Oedema peripheral [Unknown]
  - Joint swelling [Not Recovered/Not Resolved]
  - Hypotension [Not Recovered/Not Resolved]
  - Fatigue [Unknown]
  - Injection site erythema [Unknown]
